FAERS Safety Report 10495078 (Version 1)
Quarter: 2014Q4

REPORT INFORMATION
  Report Type: Spontaneous
  Country: FR (occurrence: FR)
  Receive Date: 20141003
  Receipt Date: 20141003
  Transmission Date: 20150528
  Serious: Yes (Hospitalization, Other)
  Sender: FDA-Public Use
  Company Number: FR-ELI_LILLY_AND_COMPANY-FR201409007993

PATIENT
  Age: 75 Year
  Sex: Male

DRUGS (4)
  1. TADENAN [Concomitant]
     Active Substance: PYGEUM
     Dosage: 50 MG, QD
     Route: 065
  2. TRIVASTAL                          /00397201/ [Concomitant]
     Active Substance: PIRIBEDIL
     Dosage: 20 MG, QD
     Route: 065
  3. ZYPREXA [Suspect]
     Active Substance: OLANZAPINE
     Indication: PRODUCT USED FOR UNKNOWN INDICATION
     Dosage: 5 MG, QD
     Route: 048
     Dates: end: 20140722
  4. SEROPLEX [Suspect]
     Active Substance: ESCITALOPRAM OXALATE
     Indication: PRODUCT USED FOR UNKNOWN INDICATION
     Dosage: 10 MG, QD
     Route: 065

REACTIONS (5)
  - Ventricular arrhythmia [Recovered/Resolved]
  - Hyperhidrosis [Unknown]
  - Tachycardia [Unknown]
  - Syncope [Unknown]
  - Pallor [Unknown]

NARRATIVE: CASE EVENT DATE: 20140721
